FAERS Safety Report 8276432-0 (Version None)
Quarter: 2012Q2

REPORT INFORMATION
  Report Type: 
  Country: None (occurrence: None)
  Receive Date: 20120412
  Receipt Date: 20120403
  Transmission Date: 20120825
  Serious: No
  Sender: FDA-Public Use
  Company Number: US-PFIZER INC-2012088138

PATIENT
  Sex: Female

DRUGS (5)
  1. TRAZODONE [Concomitant]
  2. PROZAC [Concomitant]
  3. SYNTHROID [Concomitant]
  4. CLEOCIN HYDROCHLORIDE [Suspect]
     Indication: INFECTION
     Dosage: 300 MG, 3X/DAY
     Route: 048
     Dates: start: 20120123, end: 20120124
  5. XALATAN [Concomitant]

REACTIONS (2)
  - RASH PRURITIC [None]
  - FLUSHING [None]
